FAERS Safety Report 7254155-4 (Version None)
Quarter: 2011Q1

REPORT INFORMATION
  Report Type: 
  Country: None (occurrence: None)
  Receive Date: 20110129
  Receipt Date: 20100209
  Transmission Date: 20110831
  Serious: No
  Sender: FDA-Public Use
  Company Number: US-ABBOTT-10P-163-0625930-00

PATIENT
  Sex: Female
  Weight: 75.818 kg

DRUGS (4)
  1. HUMIRA [Suspect]
     Indication: CROHN'S DISEASE
     Dates: start: 20100206, end: 20100206
  2. HUMIRA [Suspect]
     Route: 058
     Dates: start: 20100207, end: 20100207
  3. HUMIRA [Suspect]
     Dates: start: 20100208, end: 20100208
  4. ASACOL [Concomitant]
     Indication: CROHN'S DISEASE
     Dates: start: 20040101

REACTIONS (3)
  - POOR QUALITY DRUG ADMINISTERED [None]
  - INCORRECT DOSE ADMINISTERED [None]
  - INCORRECT STORAGE OF DRUG [None]
